FAERS Safety Report 6874323-0 (Version None)
Quarter: 2010Q3

REPORT INFORMATION
  Report Type: 
  Country: None (occurrence: None)
  Receive Date: 20100723
  Receipt Date: 20090504
  Transmission Date: 20110219
  Serious: Yes (Other)
  Sender: FDA-Public Use
  Company Number: US-PFIZER INC-2009201111

PATIENT
  Sex: Female
  Weight: 41.088 kg

DRUGS (2)
  1. CHANTIX [Suspect]
     Indication: SMOKING CESSATION THERAPY
     Dosage: 0.5 MG, 2X/DAY
     Dates: start: 20090401, end: 20090409
  2. CALCIUM [Concomitant]
     Dosage: UNK

REACTIONS (13)
  - BODY HEIGHT DECREASED [None]
  - DECREASED APPETITE [None]
  - DEPRESSION [None]
  - DIARRHOEA [None]
  - DYSPNOEA [None]
  - EYE DISORDER [None]
  - FATIGUE [None]
  - FEELING ABNORMAL [None]
  - HYPERSOMNIA [None]
  - ILL-DEFINED DISORDER [None]
  - NIGHTMARE [None]
  - PSORIASIS [None]
  - TREMOR [None]
